FAERS Safety Report 9380990 (Version 6)
Quarter: 2013Q3

REPORT INFORMATION
  Report Type: Spontaneous
  Country: JP (occurrence: JP)
  Receive Date: 20130703
  Receipt Date: 20130731
  Transmission Date: 20140515
  Serious: Yes (Death)
  Sender: FDA-Public Use
  Company Number: JP-BRISTOL-MYERS SQUIBB COMPANY-19050616

PATIENT
  Age: 76 Year
  Sex: Male

DRUGS (8)
  1. ELIQUIS [Suspect]
     Indication: THROMBOSIS PROPHYLAXIS
     Route: 048
     Dates: start: 20130618
  2. MEVALOTIN [Concomitant]
     Indication: LIPID METABOLISM DISORDER
     Route: 048
     Dates: start: 20130618
  3. VASOLAN [Concomitant]
     Indication: ATRIAL FIBRILLATION
     Dosage: TABS
     Route: 048
     Dates: start: 20130618
  4. L-CARBOCISTEINE [Concomitant]
     Indication: CHRONIC OBSTRUCTIVE PULMONARY DISEASE
     Route: 048
     Dates: start: 20130618
  5. MEDICON [Concomitant]
     Indication: CHRONIC OBSTRUCTIVE PULMONARY DISEASE
     Route: 048
     Dates: start: 20130618
  6. CIBENOL [Concomitant]
     Indication: ATRIAL FIBRILLATION
     Route: 048
     Dates: start: 20130618
  7. SPIRIVA [Concomitant]
     Indication: CHRONIC OBSTRUCTIVE PULMONARY DISEASE
     Dosage: 18 MICROGRAMS,CAPS
     Route: 045
     Dates: start: 20130618
  8. BROTIZOLAM [Concomitant]
     Indication: INSOMNIA
     Dosage: TABS
     Route: 048
     Dates: start: 20130618

REACTIONS (4)
  - Cardiac failure acute [Fatal]
  - Arrhythmia [Fatal]
  - Hyperkalaemia [Fatal]
  - Nausea [Unknown]
